FAERS Safety Report 15300316 (Version 1)
Quarter: 2018Q3

REPORT INFORMATION
  Report Type: Spontaneous
  Country: BR (occurrence: BR)
  Receive Date: 20180821
  Receipt Date: 20180821
  Transmission Date: 20181010
  Serious: Yes (Other)
  Sender: FDA-Public Use
  Company Number: BR-GLAXOSMITHKLINE-BR2018GSK148312

PATIENT
  Sex: Female
  Weight: 13 kg

DRUGS (3)
  1. SERETIDE [Suspect]
     Active Substance: FLUTICASONE PROPIONATE\SALMETEROL XINAFOATE
     Indication: ASTHMATIC CRISIS
     Dosage: 2 DF, BID
     Route: 055
     Dates: start: 201807
  2. AEROLIN [Suspect]
     Active Substance: ALBUTEROL
     Indication: ASTHMA
     Dosage: UNK
  3. CLENIL [Concomitant]
     Active Substance: BECLOMETHASONE DIPROPIONATE
     Indication: ASTHMATIC CRISIS
     Dosage: UNK

REACTIONS (5)
  - Drug prescribing error [Recovered/Resolved]
  - Upper airway obstruction [Unknown]
  - Product use issue [Unknown]
  - Product use in unapproved indication [Unknown]
  - Erythema [Unknown]
